FAERS Safety Report 6036040-9 (Version None)
Quarter: 2009Q1

REPORT INFORMATION
  Report Type: 
  Country: None (occurrence: None)
  Receive Date: 20090113
  Receipt Date: 20090105
  Transmission Date: 20090719
  Serious: Yes (Hospitalization)
  Sender: FDA-Public Use
  Company Number: BR-ROCHE-606103

PATIENT
  Sex: Male
  Weight: 85 kg

DRUGS (6)
  1. VALIUM [Suspect]
     Indication: ANXIETY
     Dosage: INDICATION: ANXIETY, TRANQUILLIZER AND INSOMNIA, BATCH MANUFACTURE:SEP 08
     Route: 048
     Dates: start: 19840101
  2. VALIUM [Suspect]
     Dosage: INDICATION: ANXIETY, TRANQUILLIZER AND INSOMNIA, BATCH MANUFACTURE:SEP 08
     Route: 048
  3. LEXOTAN [Suspect]
     Indication: DRUG USE FOR UNKNOWN INDICATION
     Route: 065
  4. ALPRAZOLAM [Suspect]
     Indication: ANXIETY
     Route: 048
  5. NIFEDIPINE [Concomitant]
     Indication: HYPERTENSION
     Route: 048
  6. LOSARTAN POTASSIUM [Concomitant]
     Indication: HYPERTENSION
     Route: 048

REACTIONS (6)
  - ANXIETY [None]
  - CARDIAC ARREST [None]
  - DRUG INEFFECTIVE [None]
  - HYPERNATRAEMIA [None]
  - INSOMNIA [None]
  - PULMONARY OEDEMA [None]
